FAERS Safety Report 10594209 (Version 1)
Quarter: 2014Q4

REPORT INFORMATION
  Report Type: Spontaneous
  Country: US (occurrence: US)
  Receive Date: 20141119
  Receipt Date: 20141119
  Transmission Date: 20150529
  Serious: No
  Sender: FDA-Public Use
  Company Number: US-SA-2014SA112528

PATIENT
  Age: 50 Year
  Sex: Male

DRUGS (1)
  1. AUVI-Q [Suspect]
     Active Substance: EPINEPHRINE
     Indication: ACCIDENTAL EXPOSURE TO PRODUCT
     Dosage: .15MG LIVE DEVICE
     Route: 065

REACTIONS (1)
  - Accidental exposure to product [Unknown]
